FAERS Safety Report 4399795-5 (Version None)
Quarter: 2004Q3

REPORT INFORMATION
  Report Type: 
  Country: None (occurrence: None)
  Receive Date: 20040714
  Receipt Date: 20040705
  Transmission Date: 20050211
  Serious: Yes (Other)
  Sender: FDA-Public Use
  Company Number: 2004044690

PATIENT

DRUGS (1)
  1. UNASYN [Suspect]
     Indication: ILL-DEFINED DISORDER
     Dosage: 1 D, INTRAVENOUS
     Route: 042
     Dates: start: 20040701, end: 20040701

REACTIONS (1)
  - ANAPHYLACTIC SHOCK [None]
